FAERS Safety Report 5227478-8 (Version None)
Quarter: 2007Q1

REPORT INFORMATION
  Report Type: 
  Country: None (occurrence: None)
  Receive Date: 20061201
  Receipt Date: 20061009
  Transmission Date: 20070707
  Serious: No
  Sender: FDA-Public Use
  Company Number: US200610001751

PATIENT
  Age: 37 Year
  Sex: Female

DRUGS (2)
  1. CYMBALTA [Suspect]
     Indication: HYPOAESTHESIA
     Dosage: SEE IMAGE
     Dates: start: 20051101, end: 20060101
  2. CYMBALTA [Suspect]
     Indication: HYPOAESTHESIA
     Dosage: SEE IMAGE
     Dates: start: 20061001

REACTIONS (7)
  - AFFECT LABILITY [None]
  - CONSTIPATION [None]
  - CRYING [None]
  - DIZZINESS [None]
  - NAUSEA [None]
  - PARAESTHESIA [None]
  - VISION BLURRED [None]
